FAERS Safety Report 18189422 (Version 6)
Quarter: 2022Q3

REPORT INFORMATION
  Report Type: Report from Study
  Country: US (occurrence: US)
  Receive Date: 20200824
  Receipt Date: 20220915
  Transmission Date: 20221027
  Serious: Yes (Hospitalization, Other)
  Sender: FDA-Public Use
  Company Number: US-SHIRE-US202027401

PATIENT
  Age: 31 Year
  Sex: Male

DRUGS (3)
  1. ADVATE [Suspect]
     Active Substance: ANTIHEMOPHILIC FACTOR, HUMAN RECOMBINANT
     Indication: Product used for unknown indication
     Dosage: 2000 INTERNATIONAL UNIT
     Route: 042
  2. ADVATE [Suspect]
     Active Substance: ANTIHEMOPHILIC FACTOR, HUMAN RECOMBINANT
     Indication: Product used for unknown indication
     Dosage: 2000 INTERNATIONAL UNIT
     Route: 042
  3. ADVATE [Suspect]
     Active Substance: ANTIHEMOPHILIC FACTOR, HUMAN RECOMBINANT
     Indication: Product used for unknown indication
     Dosage: 2000 INTERNATIONAL UNIT
     Route: 042

REACTIONS (9)
  - Chest injury [Not Recovered/Not Resolved]
  - COVID-19 [Recovering/Resolving]
  - Seizure [Unknown]
  - Haemorrhage [Recovered/Resolved]
  - Rib fracture [Unknown]
  - Stress [Unknown]
  - Fall [Unknown]
  - Limb injury [Unknown]
  - Product availability issue [Unknown]

NARRATIVE: CASE EVENT DATE: 20200725
